FAERS Safety Report 6051074-6 (Version None)
Quarter: 2009Q1

REPORT INFORMATION
  Report Type: 
  Country: None (occurrence: None)
  Receive Date: 20090126
  Receipt Date: 20080811
  Transmission Date: 20090719
  Serious: No
  Sender: FDA-Public Use
  Company Number: US-ABBOTT-08P-163-0470084-00

PATIENT

DRUGS (4)
  1. TRICOR [Suspect]
     Indication: BLOOD TRIGLYCERIDES INCREASED
  2. SIMAVASTATIN [Concomitant]
     Indication: DRUG USE FOR UNKNOWN INDICATION
  3. VALPROATE SODIUM [Concomitant]
     Indication: DRUG USE FOR UNKNOWN INDICATION
  4. LOVAZA [Concomitant]

REACTIONS (1)
  - DRUG INEFFECTIVE [None]
